FAERS Safety Report 6852407-0 (Version None)
Quarter: 2010Q3

REPORT INFORMATION
  Report Type: 
  Country: None (occurrence: None)
  Receive Date: 20100717
  Receipt Date: 20071112
  Transmission Date: 20110219
  Serious: No
  Sender: FDA-Public Use
  Company Number: US-PFIZER INC-2007097050

PATIENT
  Sex: Male
  Weight: 61.2 kg

DRUGS (3)
  1. CHANTIX [Suspect]
     Indication: SMOKING CESSATION THERAPY
     Route: 048
     Dates: start: 20071105
  2. BENICAR [Concomitant]
  3. DRUG, UNSPECIFIED [Concomitant]
     Indication: BLADDER CANCER

REACTIONS (1)
  - DRUG INEFFECTIVE [None]
